FAERS Safety Report 5430290-8 (Version None)
Quarter: 2007Q3

REPORT INFORMATION
  Report Type: 
  Country: None (occurrence: None)
  Receive Date: 20070829
  Receipt Date: 20070704
  Transmission Date: 20080115
  Serious: Yes (Death, Other)
  Sender: FDA-Public Use
  Company Number: GB-ELI_LILLY_AND_COMPANY-GB200707001387

PATIENT
  Age: 35 Year
  Sex: Female
  Weight: 114 kg

DRUGS (7)
  1. FLUOXETINE [Suspect]
     Dosage: 40 MG, DAILY (1/D)
     Route: 065
  2. PAROXETINE [Concomitant]
     Dosage: 25 MG, DAILY (1/D)
     Route: 065
  3. CLOZARIL [Concomitant]
     Dosage: 350 MG, DAILY (1/D)
     Route: 048
  4. LEVOTHYROXINE SODIUM [Concomitant]
     Dosage: UNK, UNKNOWN
     Route: 065
  5. LITHIUM CARBONATE [Concomitant]
     Indication: AFFECTIVE DISORDER
     Dosage: 400 MG, DAILY (1/D)
     Route: 048
     Dates: end: 20051201
  6. OMEPRAZOLE [Concomitant]
  7. ZOPICLONE [Concomitant]

REACTIONS (2)
  - EPILEPSY [None]
  - SUDDEN DEATH [None]
